FAERS Safety Report 7497298-2 (Version None)
Quarter: 2011Q2

REPORT INFORMATION
  Report Type: 
  Country: None (occurrence: None)
  Receive Date: 20110523
  Receipt Date: 20110512
  Transmission Date: 20111010
  Serious: Yes (Hospitalization, Disabling, Other)
  Sender: FDA-Public Use
  Company Number: JO-ASTRAZENECA-2011SE28832

PATIENT
  Age: 67 Year
  Sex: Male

DRUGS (3)
  1. MEROPENEM [Suspect]
     Route: 042
  2. XEFO [Concomitant]
  3. MEROPENEM [Suspect]
     Route: 042

REACTIONS (3)
  - RENAL FAILURE ACUTE [None]
  - DIALYSIS [None]
  - LEG AMPUTATION [None]
